FAERS Safety Report 5930642-3 (Version None)
Quarter: 2008Q4

REPORT INFORMATION
  Report Type: 
  Country: None (occurrence: None)
  Receive Date: 20081027
  Receipt Date: 20081021
  Transmission Date: 20090506
  Serious: Yes (Life-Threatening)
  Sender: FDA-Public Use
  Company Number: US-JNJFOC-20081004916

PATIENT
  Age: 38 Year
  Sex: Male

DRUGS (7)
  1. ULTRAM ER [Suspect]
     Indication: DRUG USE FOR UNKNOWN INDICATION
     Route: 048
  2. BENZODIAZEPINE [Suspect]
     Indication: DRUG USE FOR UNKNOWN INDICATION
     Route: 065
  3. ANTICONVULSANT [Suspect]
     Indication: DRUG USE FOR UNKNOWN INDICATION
     Route: 065
  4. ANTIDEPRESSANT [Suspect]
     Indication: DRUG USE FOR UNKNOWN INDICATION
     Route: 065
  5. ANTIPSYCHOTIC [Concomitant]
     Route: 065
  6. CIMETIDINE [Concomitant]
     Route: 065
  7. LEUKOTRIENE ANTAGONIST [Concomitant]

REACTIONS (4)
  - CARDIAC ENZYMES INCREASED [None]
  - OVERDOSE [None]
  - STUPOR [None]
  - SUICIDE ATTEMPT [None]
